FAERS Safety Report 16658811 (Version 1)
Quarter: 2019Q3

REPORT INFORMATION
  Report Type: Report from Study
  Country: BR (occurrence: BR)
  Receive Date: 20190801
  Receipt Date: 20190801
  Transmission Date: 20191004
  Serious: Yes (Other)
  Sender: FDA-Public Use
  Company Number: PHHY2019BR176771

PATIENT
  Age: 55 Year
  Sex: Male

DRUGS (1)
  1. COSENTYX [Suspect]
     Active Substance: SECUKINUMAB
     Indication: ANKYLOSING SPONDYLITIS
     Dosage: UNK
     Route: 065
     Dates: start: 20190329

REACTIONS (6)
  - Pneumonia [Unknown]
  - Influenza [Unknown]
  - Decreased immune responsiveness [Unknown]
  - Multiple sclerosis [Unknown]
  - Hypoacusis [Unknown]
  - Sneezing [Unknown]

NARRATIVE: CASE EVENT DATE: 201906
